FAERS Safety Report 5028250-4 (Version None)
Quarter: 2006Q2

REPORT INFORMATION
  Report Type: 
  Country: None (occurrence: None)
  Receive Date: 20060503
  Receipt Date: 20060331
  Transmission Date: 20061013
  Serious: No
  Sender: FDA-Public Use
  Company Number: FACT0600199

PATIENT
  Age: 36 Year
  Sex: Female
  Weight: 62.1 kg

DRUGS (1)
  1. FACTIVE [Suspect]
     Indication: RESPIRATORY TRACT INFECTION BACTERIAL
     Dosage: 320 MG, QD, ORAL
     Route: 048
     Dates: start: 20060328, end: 20060331

REACTIONS (2)
  - JOINT SWELLING [None]
  - RASH PRURITIC [None]
